FAERS Safety Report 7968856-3 (Version None)
Quarter: 2011Q4

REPORT INFORMATION
  Report Type: 
  Country: None (occurrence: None)
  Receive Date: 20111209
  Receipt Date: 20111202
  Transmission Date: 20120403
  Serious: Yes (Other)
  Sender: FDA-Public Use
  Company Number: PHHY2011JP89664

PATIENT
  Age: 68 Year
  Sex: Male

DRUGS (4)
  1. FLUOROURACIL [Suspect]
     Dosage: UNK
  2. LEUCOVORIN CALCIUM [Suspect]
     Dosage: UNK
  3. OXALIPLATIN [Suspect]
     Dosage: UNK
  4. BEVACIZUMAB [Suspect]
     Dosage: UNK

REACTIONS (4)
  - BLOOD BILIRUBIN UNCONJUGATED INCREASED [None]
  - HAEMOLYSIS [None]
  - SPLENOMEGALY [None]
  - BLOOD IRON INCREASED [None]
